FAERS Safety Report 11529851 (Version 2)
Quarter: 2015Q4

REPORT INFORMATION
  Report Type: Spontaneous
  Country: US (occurrence: US)
  Receive Date: 20150921
  Receipt Date: 20151123
  Transmission Date: 20160304
  Serious: Yes (Death, Other)
  Sender: FDA-Public Use
  Company Number: US-GLAXOSMITHKLINE-A0866577A

PATIENT
  Age: 81 Year
  Sex: Female

DRUGS (11)
  1. VITAMIN B12 [Concomitant]
     Active Substance: CYANOCOBALAMIN
  2. LISINOPRIL. [Concomitant]
     Active Substance: LISINOPRIL
  3. DARVOCET [Concomitant]
     Active Substance: ACETAMINOPHEN\PROPOXYPHENE HYDROCHLORIDE
  4. CEFUROXIME AXETIL. [Suspect]
     Active Substance: CEFUROXIME AXETIL
     Indication: LUNG DISORDER
     Route: 048
     Dates: start: 201005, end: 201006
  5. SEREVENT DISKUS [Suspect]
     Active Substance: SALMETEROL XINAFOATE
     Indication: ASTHMA
     Route: 055
  6. NEURONTIN [Concomitant]
     Active Substance: GABAPENTIN
  7. LEVOTHYROXINE. [Concomitant]
     Active Substance: LEVOTHYROXINE
  8. HYDROCODONE [Concomitant]
     Active Substance: HYDROCODONE
  9. FLOVENT [Suspect]
     Active Substance: FLUTICASONE PROPIONATE
     Indication: ASTHMA
     Dosage: INH 220MCG
     Route: 055
  10. BABY ASPIRIN [Concomitant]
     Active Substance: ASPIRIN
  11. PREMARIN [Concomitant]
     Active Substance: ESTROGENS, CONJUGATED

REACTIONS (14)
  - Death [Fatal]
  - Pain [Unknown]
  - Pneumonia [Fatal]
  - Fatigue [Unknown]
  - Croup infectious [Unknown]
  - Productive cough [Unknown]
  - Treatment noncompliance [Unknown]
  - Chest discomfort [Unknown]
  - Lung disorder [Unknown]
  - Neuralgia [Unknown]
  - Temporomandibular joint syndrome [Unknown]
  - Upper respiratory tract infection [Unknown]
  - Drug ineffective [Unknown]
  - Adverse event [Unknown]

NARRATIVE: CASE EVENT DATE: 20100523
